FAERS Safety Report 17704006 (Version 1)
Quarter: 2020Q2

REPORT INFORMATION
  Report Type: Spontaneous
  Country: US (occurrence: US)
  Receive Date: 20200423
  Receipt Date: 20200423
  Transmission Date: 20200714
  Serious: Yes (Other)
  Sender: FDA-Public Use
  Company Number: None

PATIENT
  Age: 68 Year
  Sex: Female
  Weight: 93.15 kg

DRUGS (11)
  1. VITAMINS [Concomitant]
     Active Substance: VITAMINS
  2. ALBUTEROL SULFATE. [Suspect]
     Active Substance: ALBUTEROL SULFATE
     Indication: ASTHMA
     Dosage: ;QUANTITY:1 SPRAY(S);?
     Route: 048
     Dates: start: 20200418, end: 20200419
  3. MINERAL E [Concomitant]
  4. MULTI-MINERAL [Concomitant]
  5. MINERAL B [Concomitant]
  6. MINERAL D [Concomitant]
  7. CANDIDA SUPPORT [Concomitant]
  8. MINERALS A [Concomitant]
  9. MINERAL C [Concomitant]
  10. POTASSIUM [Concomitant]
     Active Substance: POTASSIUM
  11. CIDER VINGER [Concomitant]

REACTIONS (5)
  - Product substitution issue [None]
  - Drug delivery system malfunction [None]
  - Dyspnoea [None]
  - Product odour abnormal [None]
  - Drug ineffective [None]

NARRATIVE: CASE EVENT DATE: 20200418
